FAERS Safety Report 10027776 (Version 2)
Quarter: 2014Q2

REPORT INFORMATION
  Report Type: Spontaneous
  Country: US (occurrence: None)
  Receive Date: 20140319
  Receipt Date: 20140409
  Transmission Date: 20141212
  Serious: Yes (Death)
  Sender: FDA-Public Use
  Company Number: INS201403-000004

PATIENT
  Age: 61 Year
  Sex: Female

DRUGS (1)
  1. SUBSYS [Suspect]
     Indication: CANCER PAIN
     Dosage: (200 MCG, FOUR HOURS AS NEEDED)
     Route: 060

REACTIONS (3)
  - Death [None]
  - Pancreatic carcinoma metastatic [None]
  - Disease progression [None]
